FAERS Safety Report 17383496 (Version 3)
Quarter: 2022Q1

REPORT INFORMATION
  Report Type: Spontaneous
  Country: US (occurrence: US)
  Receive Date: 20200206
  Receipt Date: 20220201
  Transmission Date: 20220423
  Serious: No
  Sender: FDA-Public Use
  Company Number: US-19K-163-2987937-00

PATIENT
  Sex: Female

DRUGS (1)
  1. HUMIRA [Suspect]
     Active Substance: ADALIMUMAB
     Indication: Product used for unknown indication
     Route: 058

REACTIONS (5)
  - Dysarthria [Unknown]
  - Blood glucose increased [Unknown]
  - Hypersensitivity [Unknown]
  - Hypertension [Unknown]
  - Urticaria [Unknown]
